FAERS Safety Report 20902319 (Version 1)
Quarter: 2022Q2

REPORT INFORMATION
  Report Type: Spontaneous
  Country: BR (occurrence: BR)
  Receive Date: 20220601
  Receipt Date: 20220601
  Transmission Date: 20220721
  Serious: Yes (Other)
  Sender: FDA-Public Use
  Company Number: BR-TAKEDA-2021TUS065622

PATIENT
  Age: 35 Year
  Sex: Male
  Weight: 89 kg

DRUGS (3)
  1. MESALAMINE [Suspect]
     Active Substance: MESALAMINE
     Indication: Inflammatory bowel disease
     Dosage: 800 MILLIGRAM, BID
     Route: 048
     Dates: start: 202106, end: 20211019
  2. MESALAMINE [Suspect]
     Active Substance: MESALAMINE
     Dosage: 400 MILLIGRAM
     Route: 065
  3. METAMUCIL [Concomitant]
     Active Substance: PLANTAGO SEED
     Indication: Functional gastrointestinal disorder
     Dosage: UNK
     Route: 065

REACTIONS (2)
  - Drug dependence [Unknown]
  - Therapy interrupted [Unknown]

NARRATIVE: CASE EVENT DATE: 20211019
